FAERS Safety Report 8621546 (Version 2)
Quarter: 2013Q1

REPORT INFORMATION
  Report Type: Spontaneous
  Country: US (occurrence: US)
  Receive Date: 20120619
  Receipt Date: 20130218
  Transmission Date: 20140127
  Serious: Yes (Hospitalization)
  Sender: FDA-Public Use
  Company Number: US-BRISTOL-MYERS SQUIBB COMPANY-16677783

PATIENT
  Age: 50 Year
  Sex: Male
  Weight: 77.1 kg

DRUGS (1)
  1. SPRYCEL [Suspect]
     Indication: HEAD AND NECK CANCER
     Route: 048
     Dates: start: 20120416

REACTIONS (1)
  - Throat cancer [Unknown]
